FAERS Safety Report 5903261-2 (Version None)
Quarter: 2008Q3

REPORT INFORMATION
  Report Type: 
  Country: None (occurrence: None)
  Receive Date: 20080926
  Receipt Date: 20080916
  Transmission Date: 20090109
  Serious: Yes (Hospitalization)
  Sender: FDA-Public Use
  Company Number: GXKR2008CA08956

PATIENT
  Age: 67 Year
  Sex: Female
  Weight: 55 kg

DRUGS (24)
  1. NITROGLYCERIN [Suspect]
     Indication: BLOOD PRESSURE INCREASED
     Dosage: UNK INTRAVENOUS
     Route: 042
     Dates: start: 20080828, end: 20080828
  2. PHENYLEPHRINE HCL INJ USP (NGX) (PHENYLEPHRINE) UNKNOWN [Suspect]
     Indication: HYPOTENSION
     Dosage: 4 MG TOTAL INTRAVENOUS
     Route: 042
     Dates: start: 20080828, end: 20080828
  3. PROTAMINE SULFATE [Suspect]
     Indication: HEPARIN NEUTRALISATION THERAPY
     Dosage: 250 MG UNK INTRAVENOUS
     Route: 042
     Dates: start: 20080828, end: 20080828
  4. TRANEXAMIC ACID INJ BP (NGX) (TRANEXAMIC ACID) UNKNOWN [Suspect]
     Indication: HAEMORRHAGE PROPHYLAXIS
     Dosage: 7 G UNK INTRAVENOUS
     Route: 042
     Dates: start: 20080828, end: 20080828
  5. HEPARIN [Suspect]
     Indication: ANTICOAGULANT THERAPY
     Dosage: 25000 IU/DAY INTRAVENOU
     Route: 042
  6. FENTANYL-100 [Concomitant]
  7. INSULIN (INSULIN) [Concomitant]
  8. MANNITOL [Concomitant]
  9. VALIUM [Concomitant]
  10. MIDAZOLAM HCL [Concomitant]
  11. PAPAVERINE (PAPAVERINE) [Concomitant]
  12. PANCURONIUM [Concomitant]
  13. CALCIUM CHLORIDE [Concomitant]
  14. EPINEPHRINE [Concomitant]
  15. MORPHINE [Concomitant]
  16. PROPOFOL [Concomitant]
  17. SEVOFLURANE [Concomitant]
  18. SODIUM BICARBONATE IN PLASTIC CONTAINER [Concomitant]
  19. VANCOMYCIN [Concomitant]
  20. MAGNESIUM SULFATE [Concomitant]
  21. BACITRACIN [Concomitant]
  22. PROTAMINE SULFATE [Suspect]
  23. PROTAMINE SULFATE [Suspect]
  24. TRANEXAMIC ACID INJ BP (NGX) (TRANEXAMIC ACID) UNKNOWN [Suspect]

REACTIONS (1)
  - GRAND MAL CONVULSION [None]
